FAERS Safety Report 5583361-X (Version None)
Quarter: 2008Q1

REPORT INFORMATION
  Report Type: 
  Country: None (occurrence: None)
  Receive Date: 20080107
  Receipt Date: 20071227
  Transmission Date: 20080703
  Serious: Yes (Hospitalization)
  Sender: FDA-Public Use
  Company Number: SE-PFIZER INC-2007108586

PATIENT
  Sex: Male

DRUGS (7)
  1. SUTENT [Suspect]
     Indication: RENAL CANCER METASTATIC
     Route: 048
     Dates: start: 20071126, end: 20071212
  2. ACETYLSALICYLIC ACID SRT [Concomitant]
  3. ENALAPRIL [Concomitant]
  4. AMLODIPINE [Concomitant]
  5. METOPROLOL [Concomitant]
  6. FUROSEMIDE [Concomitant]
  7. ATORVASTATIN [Concomitant]
     Dosage: DAILY DOSE:20MG

REACTIONS (2)
  - DIARRHOEA HAEMORRHAGIC [None]
  - GASTROENTERITIS [None]
